FAERS Safety Report 6577384-1 (Version None)
Quarter: 2010Q1

REPORT INFORMATION
  Report Type: 
  Country: None (occurrence: None)
  Receive Date: 20100211
  Receipt Date: 20100201
  Transmission Date: 20100710
  Serious: Yes (Other)
  Sender: FDA-Public Use
  Company Number: US-BIOGENIDEC-2010BI003409

PATIENT
  Age: 53 Year
  Sex: Female

DRUGS (1)
  1. AVONEX [Suspect]
     Indication: MULTIPLE SCLEROSIS
     Route: 030
     Dates: start: 20091111

REACTIONS (9)
  - ABDOMINAL DISCOMFORT [None]
  - CHOLELITHIASIS [None]
  - COLITIS [None]
  - CONSTIPATION [None]
  - HEPATIC VEIN THROMBOSIS [None]
  - MUSCULOSKELETAL DISCOMFORT [None]
  - NAUSEA [None]
  - RENAL CYST [None]
  - WHITE BLOOD CELL COUNT INCREASED [None]
